FAERS Safety Report 7131516-5 (Version None)
Quarter: 2010Q4

REPORT INFORMATION
  Report Type: 
  Country: None (occurrence: None)
  Receive Date: 20101201
  Receipt Date: 20101124
  Transmission Date: 20110411
  Serious: Yes (Other)
  Sender: FDA-Public Use
  Company Number: BR-ROCHE-665097

PATIENT
  Sex: Female
  Weight: 66 kg

DRUGS (11)
  1. IBANDRONIC ACID [Suspect]
     Indication: OSTEOPOROSIS
     Dosage: ADDITIONAL INDICATION: PAGET'S DISEASE
     Route: 048
     Dates: start: 20060520, end: 20100101
  2. PURAN T4 [Concomitant]
     Indication: THYROID DISORDER
     Dosage: FREQUENCY: 1 TABLET PER DAY,OTHER INDICATION: HASHIMOTO'S THYROIDITIS, RECEIVED UNDER FASTING.
     Route: 048
     Dates: start: 20000101
  3. APROVEL [Concomitant]
     Indication: HYPERTENSION
     Dosage: FREQUENCY: 1 TABLET PER DAY,TAKEN AFTER BREAKFAST
     Route: 048
     Dates: start: 20000101
  4. METFORMIN HCL [Concomitant]
     Route: 048
     Dates: start: 19970101
  5. ASCORBIC ACID [Concomitant]
     Dosage: FREQUENCY: 1 TABLET PER DAY, INDICATION ^STRENGTHEN^.
     Route: 048
     Dates: start: 20000101
  6. CALTRATE 600 + D [Concomitant]
     Indication: OSTEOPOROSIS
     Dosage: FREQUENCY: 1 TABLET PER DAY.
     Route: 048
     Dates: start: 20000101
  7. DAFLON [Concomitant]
     Indication: VARICOSE VEIN
     Route: 048
  8. CONDROFLEX [Concomitant]
     Dosage: DOSE: 1.5 + 1.2 GRAM
     Route: 048
     Dates: start: 19890101
  9. METFORMIN HYDROCHLORIDE [Concomitant]
     Dosage: FREQUENCY: 3 TABLETS PER DAY
     Route: 048
     Dates: start: 20020101
  10. OMEPRAZOLE [Concomitant]
     Dosage: FREQUENCY: EVENTUALLY.
     Route: 048
  11. CRESTOR [Concomitant]
     Dosage: FREQUENCY: 1 TABLET EVERY OTHER DAY, TAKEN ONE DOSE FORM.
     Route: 048
     Dates: start: 20100401

REACTIONS (8)
  - CATARACT [None]
  - DEPRESSION [None]
  - DRUG INEFFECTIVE [None]
  - OSTEOARTHRITIS [None]
  - OSTEOPENIA [None]
  - OSTEOPOROSIS [None]
  - PAIN [None]
  - PAIN IN EXTREMITY [None]
